FAERS Safety Report 10035377 (Version 1)
Quarter: 2014Q1

REPORT INFORMATION
  Report Type: Spontaneous
  Country: US (occurrence: None)
  Receive Date: 20140306
  Receipt Date: 20140306
  Transmission Date: 20141002
  Serious: Yes (Hospitalization, Other)
  Sender: FDA-Public Use
  Company Number: 163-21880-13062557

PATIENT
  Age: 75 Year
  Sex: Male

DRUGS (11)
  1. REVLIMID (LENALIDOMIDE) (25 MILLIGRAM, CAPSULES) [Suspect]
     Indication: PLASMA CELL MYELOMA
     Dosage: 25 MG,  21 IN 28 D, PO  08/ /2012 - TEMPORARILY THERAPY DATES
     Route: 048
     Dates: start: 201208
  2. PANTOPRAZOLE SODIUM [Concomitant]
  3. ATENOLOL [Concomitant]
  4. SIMVASTATIN (SIMVASTATIN) (TABLETS) [Concomitant]
  5. ISOSORBIDE [Concomitant]
  6. ALLOPURINOL [Concomitant]
  7. MAGNESIUM OXIDE [Concomitant]
  8. DOCUSATE SODIUM [Concomitant]
  9. DIALYVITE WITH ZINC [Concomitant]
  10. VITAMIN B12 [Concomitant]
  11. DEXAMETHASONE [Concomitant]

REACTIONS (2)
  - Local swelling [None]
  - Renal impairment [None]
